FAERS Safety Report 14913760 (Version 1)
Quarter: 2018Q2

REPORT INFORMATION
  Report Type: Spontaneous
  Country: US (occurrence: US)
  Receive Date: 20180518
  Receipt Date: 20180518
  Transmission Date: 20180711
  Serious: No
  Sender: FDA-Public Use
  Company Number: US-MYLANLABS-2018M1028848

PATIENT
  Sex: Male
  Weight: 82 kg

DRUGS (7)
  1. PROTONIX                           /00661201/ [Concomitant]
     Active Substance: OMEPRAZOLE
     Indication: PRODUCT USED FOR UNKNOWN INDICATION
     Dosage: UNK, QD
     Route: 048
  2. COLACE [Concomitant]
     Active Substance: DOCUSATE SODIUM
     Indication: PRODUCT USED FOR UNKNOWN INDICATION
     Dosage: UNK, BID
     Route: 048
  3. MULTIVITAMINS                      /07504101/ [Concomitant]
     Indication: PRODUCT USED FOR UNKNOWN INDICATION
     Dosage: UNK
     Route: 048
  4. MIDODRINE [Concomitant]
     Active Substance: MIDODRINE
     Indication: PRODUCT USED FOR UNKNOWN INDICATION
     Dosage: UNK, TID
     Route: 048
  5. XIFAXAN [Concomitant]
     Active Substance: RIFAXIMIN
     Indication: PRODUCT USED FOR UNKNOWN INDICATION
     Dosage: UNK, BID
     Route: 048
  6. PROCTOFOAM HC [Suspect]
     Active Substance: HYDROCORTISONE ACETATE\PRAMOXINE HYDROCHLORIDE
     Indication: HAEMORRHOIDS
     Dosage: 1APPLICATION 5 TIMES A DAY
     Route: 054
     Dates: start: 201804
  7. LACTULOSE. [Concomitant]
     Active Substance: LACTULOSE
     Indication: PRODUCT USED FOR UNKNOWN INDICATION
     Dosage: UNK, QD
     Route: 048

REACTIONS (2)
  - Product leakage [Unknown]
  - Drug ineffective [Unknown]

NARRATIVE: CASE EVENT DATE: 2018
